FAERS Safety Report 19892951 (Version 1)
Quarter: 2021Q3

REPORT INFORMATION
  Report Type: Spontaneous
  Country: DE (occurrence: DE)
  Receive Date: 20210929
  Receipt Date: 20210929
  Transmission Date: 20211014
  Serious: Yes (Other)
  Sender: FDA-Public Use
  Company Number: DE-TEVA-2021-DE-1959550

PATIENT
  Age: 57 Year
  Sex: Male

DRUGS (5)
  1. PANTOPRAZOL?RATIOPHARM 40 MG MAGENSAFTRESISTENTE TABLETTEN [Suspect]
     Active Substance: PANTOPRAZOLE SODIUM
     Indication: DYSPEPSIA
     Dosage: 40 MILLIGRAM DAILY; IN THE MORNING
     Route: 048
     Dates: start: 202106
  2. BISOPROLOL?RATIOPHARM 2,5 MG [Concomitant]
     Dosage: 1.25 MILLIGRAM DAILY; IN THE EVENING
     Route: 065
  3. PANTOPRAZOL?RATIOPHARM 40 MG MAGENSAFTRESISTENTE TABLETTEN [Suspect]
     Active Substance: PANTOPRAZOLE SODIUM
     Indication: GASTROOESOPHAGEAL REFLUX DISEASE
  4. BISOPROLOL?RATIOPHARM 2,5 MG [Concomitant]
     Dosage: 2.5 MILLIGRAM DAILY; IN THE MORNING
  5. LIXIANA 60MG [Concomitant]
     Active Substance: EDOXABAN TOSYLATE
     Indication: HAEMODILUTION

REACTIONS (3)
  - Helicobacter infection [Unknown]
  - Oesophageal disorder [Not Recovered/Not Resolved]
  - Dysphagia [Unknown]

NARRATIVE: CASE EVENT DATE: 202109
